FAERS Safety Report 8482483-3 (Version None)
Quarter: 2012Q3

REPORT INFORMATION
  Report Type: 
  Country: None (occurrence: None)
  Receive Date: 20120702
  Receipt Date: 20120625
  Transmission Date: 20120928
  Serious: Yes (Other)
  Sender: FDA-Public Use
  Company Number: CHPA2012US013140

PATIENT
  Age: 77 Year
  Sex: Male

DRUGS (2)
  1. VOLTAREN [Suspect]
     Dosage: APPLY ON FINGER ONCE PER DAY
     Route: 061
     Dates: start: 20100101
  2. ANTIHYPERTENSIVE DRUGS [Concomitant]
     Indication: HYPERTENSION

REACTIONS (6)
  - THERAPEUTIC RESPONSE UNEXPECTED [None]
  - DYSPNOEA [None]
  - WRONG TECHNIQUE IN DRUG USAGE PROCESS [None]
  - THROMBOSIS [None]
  - OFF LABEL USE [None]
  - DRUG DISPENSING ERROR [None]
